FAERS Safety Report 6111043-4 (Version None)
Quarter: 2009Q1

REPORT INFORMATION
  Report Type: 
  Country: None (occurrence: None)
  Receive Date: 20090311
  Receipt Date: 20080321
  Transmission Date: 20090719
  Serious: No
  Sender: FDA-Public Use
  Company Number: US-KINGPHARMUSA00001-K200800353

PATIENT
  Sex: Female

DRUGS (3)
  1. ALTACE [Suspect]
     Indication: HYPERTENSION
     Dosage: 5 MG, QD
     Route: 048
     Dates: start: 20080101
  2. VAGINAL RING [Concomitant]
     Indication: VULVOVAGINAL PRURITUS
     Route: 067
  3. MULTIVITAMIN  /00831701/ [Concomitant]
     Dosage: UNK, QD
     Route: 048

REACTIONS (2)
  - COUGH [None]
  - PAIN [None]
